FAERS Safety Report 9006276 (Version 1)
Quarter: 2013Q1

REPORT INFORMATION
  Report Type: Spontaneous
  Country: US (occurrence: US)
  Receive Date: 20130110
  Receipt Date: 20130110
  Transmission Date: 20140127
  Serious: Yes (Other)
  Sender: FDA-Public Use
  Company Number: US-009507513-0907USA03835

PATIENT
  Age: 39 Year
  Sex: Female
  Weight: 83.46 kg

DRUGS (2)
  1. SINGULAIR [Suspect]
     Indication: HYPERSENSITIVITY
     Dosage: 10 MG, QD
     Route: 048
  2. SINGULAIR [Suspect]
     Indication: ASTHMA

REACTIONS (2)
  - Sleep disorder [Unknown]
  - Anxiety [Unknown]
